FAERS Safety Report 14044019 (Version 1)
Quarter: 2017Q4

REPORT INFORMATION
  Report Type: Report from Study
  Country: US (occurrence: US)
  Receive Date: 20171004
  Receipt Date: 20171004
  Transmission Date: 20180321
  Serious: Yes (Other)
  Sender: FDA-Public Use
  Company Number: US-BRISTOL-MYERS SQUIBB COMPANY-BMS-2017-086969

PATIENT
  Age: 56 Year
  Sex: Female
  Weight: 97 kg

DRUGS (2)
  1. NIVOLUMAB [Suspect]
     Active Substance: NIVOLUMAB
     Indication: VULVAL CANCER
     Dosage: 240 MG OVER 30 MIN ON DAYS 1, 15, 29
     Route: 042
     Dates: start: 20170705
  2. IPILIMUMAB [Suspect]
     Active Substance: IPILIMUMAB
     Indication: VULVAL CANCER
     Dosage: 1 MG/KG; 97 MG OVER 60 MINUTES ON DAY 1
     Route: 042
     Dates: start: 20170705

REACTIONS (2)
  - Anaemia [Unknown]
  - Urinary tract obstruction [Unknown]

NARRATIVE: CASE EVENT DATE: 20170830
